FAERS Safety Report 5977563-8 (Version None)
Quarter: 2008Q4

REPORT INFORMATION
  Report Type: 
  Country: None (occurrence: None)
  Receive Date: 20081201
  Receipt Date: 20081201
  Transmission Date: 20090506
  Serious: No
  Sender: FDA-Public Use
  Company Number: None

PATIENT
  Age: 48 Year
  Sex: Female
  Weight: 133.8111 kg

DRUGS (2)
  1. CHANTIX [Suspect]
     Indication: SMOKING CESSATION THERAPY
     Dosage: 1 MG 2X PO
     Route: 048
     Dates: start: 20060615, end: 20060707
  2. CHANTIX [Suspect]
     Indication: SMOKING CESSATION THERAPY
     Dosage: 1 MG 2X PO
     Route: 048
     Dates: start: 20060825, end: 20060915

REACTIONS (5)
  - ARTHRALGIA [None]
  - DRUG INTOLERANCE [None]
  - IMPAIRED WORK ABILITY [None]
  - INSOMNIA [None]
  - MYALGIA [None]
